FAERS Safety Report 7973549-2 (Version None)
Quarter: 2011Q4

REPORT INFORMATION
  Report Type: 
  Country: None (occurrence: None)
  Receive Date: 20111213
  Receipt Date: 20111205
  Transmission Date: 20120403
  Serious: Yes (Hospitalization)
  Sender: FDA-Public Use
  Company Number: US-US-EMD SERONO, INC.-7098600

PATIENT
  Sex: Female
  Weight: 118 kg

DRUGS (23)
  1. VASERETIC [Concomitant]
     Indication: HYPERTENSION
     Dates: end: 20111101
  2. DEXILANT [Concomitant]
     Dosage: FOR FOUR WEEKS
     Route: 048
  3. SERZONE [Concomitant]
  4. MULTI-VITAMINS [Concomitant]
  5. ZANTAC [Concomitant]
     Dosage: AT BEDTIME
     Route: 048
  6. HYDROCHLOROTHIAZIDE [Concomitant]
     Route: 048
  7. DUONEB [Concomitant]
     Dosage: 0.5 MG-3 MG (2.5 MG BASE)/3 MI USE WITH NEBULIZER 3-4 TIMES DAILY
     Route: 048
  8. CYMBALTA [Concomitant]
     Route: 058
  9. REBIF [Suspect]
     Route: 058
     Dates: start: 20110818
  10. AMITRIPTYLINE HCL [Concomitant]
     Route: 048
  11. ESTROPIPATE [Concomitant]
     Dosage: ONE AND ONE HALF
  12. AMITRIPTYLINE HCL [Concomitant]
     Dosage: EVENING
     Route: 048
  13. SYMBICORT [Concomitant]
     Dosage: 160 MCG-4.5 MCG/ACTUATION, INHALE 2 PUFFS BY INHALATION ROUTE TWO TIME EVERY DAY IN THE MORNING AND
  14. REBIF [Suspect]
     Indication: MULTIPLE SCLEROSIS
     Route: 058
     Dates: start: 20110527
  15. ACETAMINOPHEN [Concomitant]
     Indication: PREMEDICATION
  16. NEFAZODONE HCL [Concomitant]
     Dosage: 1.5 TABLET
     Route: 048
  17. OMNARIS [Concomitant]
     Dosage: SPRAY TWICE (100 MCG) BY INTRANASAL ROUTE EVERY DAY IN EACH NOSTRIL
  18. SSKI [Concomitant]
     Dosage: DILUTED IN A FULL GLASS (240 ML) OF WATER, FRUIT JUICE, MILK, OR BROTH 24 HOURS PRIOR TO AND ONCE DA
     Route: 048
  19. MUCINEX D [Concomitant]
     Dosage: 600 MG-60 MG, EVERY 12 HOURS AS NEEDED
     Route: 048
  20. ENALAPRIL MALEATE [Concomitant]
  21. FOSINOPRIL SODIUM [Concomitant]
     Route: 048
  22. SYNTHROID [Concomitant]
     Route: 048
  23. DENAVIR [Concomitant]
     Route: 061

REACTIONS (14)
  - BALANCE DISORDER [None]
  - ASTHENIA [None]
  - GASTROENTERITIS [None]
  - INJECTION SITE ERYTHEMA [None]
  - RENAL TUBULAR NECROSIS [None]
  - HEADACHE [None]
  - HYPERTENSION [None]
  - JOINT SWELLING [None]
  - FALL [None]
  - PARAESTHESIA [None]
  - HYPOAESTHESIA [None]
  - RENAL FAILURE ACUTE [None]
  - DEHYDRATION [None]
  - DIVERTICULUM [None]
